FAERS Safety Report 24210043 (Version 2)
Quarter: 2024Q3

REPORT INFORMATION
  Report Type: Spontaneous
  Country: IT (occurrence: IT)
  Receive Date: 20240814
  Receipt Date: 20240823
  Transmission Date: 20241016
  Serious: Yes (Death, Life-Threatening, Hospitalization, Other)
  Sender: ROCHE
  Company Number: None

PATIENT
  Age: 57 Year
  Sex: Female
  Weight: 70 kg

DRUGS (64)
  1. RITUXIMAB [Suspect]
     Active Substance: RITUXIMAB
     Indication: Richter^s syndrome
     Dosage: 375 MG/SQ.METER, 1Q3W, CYCLE 1 DAY 1 (C1D1), AS PART OF R-CHOP REGIMEN, START TIME: 16:36
     Route: 042
     Dates: start: 20240524, end: 20240524
  2. VINCRISTINE [Suspect]
     Active Substance: VINCRISTINE
     Indication: Richter^s syndrome
     Dosage: 1.4 MILLIGRAM/SQ. METER (RECOMMENDED CAP OF 2 MG), 1Q3W, AS PART OF AS PART OF R-CHOP REGIMEN, START
     Route: 050
     Dates: start: 20240524, end: 20240524
  3. ALBUMIN HUMAN [Suspect]
     Active Substance: ALBUMIN HUMAN
     Indication: Product used for unknown indication
     Dosage: UNK, ONGOING
     Route: 065
     Dates: start: 20240530
  4. FENTANYL [Suspect]
     Active Substance: FENTANYL\FENTANYL CITRATE
     Indication: Product used for unknown indication
     Dosage: UNK, ONGOING
     Route: 065
     Dates: start: 20240530
  5. EPCORITAMAB [Suspect]
     Active Substance: EPCORITAMAB
     Indication: Richter^s syndrome
     Dosage: 0.16 MG PRIMING DOSE ON C1D1, WEEKLY, START TIME: 16:36
     Route: 050
     Dates: start: 20240524, end: 20240524
  6. EPCORITAMAB [Suspect]
     Active Substance: EPCORITAMAB
     Dosage: 0.8 MG INTERMEDIATE DOSE ON C1D8, WEEKLY, START TIME: 11:58 HRS
     Route: 050
     Dates: start: 20240531, end: 20240531
  7. EPCORITAMAB [Suspect]
     Active Substance: EPCORITAMAB
     Dosage: UNK, WEEKLY, C1D8
     Route: 050
     Dates: start: 20240531, end: 20240531
  8. EPCORITAMAB [Suspect]
     Active Substance: EPCORITAMAB
     Dosage: 0.8 MG INTERMEDIATE DOSE ON C1D8, WEEKLY, START TIME: 11:58 HRS?31-MAY-2024
     Route: 058
  9. PREDNISONE [Suspect]
     Active Substance: PREDNISONE
     Indication: Richter^s syndrome
     Dosage: 100 MG/DAY, D1-D5, WEEKLY, AS PART OF AS PART OF R-CHOP REGIMEN, ROUTE: IV OR ORALLY
     Route: 050
  10. PREDNISONE [Suspect]
     Active Substance: PREDNISONE
     Dosage: UNK UNK, 1Q3W, AS PART OF AS PART OF R-CHOP REGIMEN
     Route: 048
  11. DOXORUBICIN HYDROCHLORIDE [Suspect]
     Active Substance: DOXORUBICIN HYDROCHLORIDE
     Indication: Richter^s syndrome
     Dosage: 50 MILLIGRAM/SQ. METER, 1Q3W, DOSAGE FORM: SOLUTION FOR INFUSION, AS PART OF R-CHOP REGIMEN, CYCLE 1
     Route: 042
     Dates: start: 20240524, end: 20240524
  12. TPN [Suspect]
     Active Substance: AMINO ACIDS\DEXTROSE\ELECTROLYTES NOS\SOYBEAN OIL
     Indication: Product used for unknown indication
     Dosage: UNK, DUE TO THERAPEUTIC REASON
     Route: 065
     Dates: start: 20240514
  13. CYCLOPHOSPHAMIDE [Suspect]
     Active Substance: CYCLOPHOSPHAMIDE
     Indication: Richter^s syndrome
     Dosage: 750 MILLIGRAM/SQ. METER, 1Q3W, DOSAGE FORM: POWDER FOR SOLUTION FOR INJECTION, AS PART OF R-CHOP REG
     Route: 042
     Dates: start: 20240524, end: 20240524
  14. PIPERACILLIN SODIUM\SULBACTAM SODIUM [Concomitant]
     Active Substance: PIPERACILLIN SODIUM\SULBACTAM SODIUM
     Dosage: UNK
     Route: 065
     Dates: start: 20240507, end: 20240519
  15. CANRENOATE POTASSIUM [Concomitant]
     Active Substance: CANRENOATE POTASSIUM
     Dosage: UNK
     Route: 065
     Dates: start: 20240501, end: 20240503
  16. FILGRASTIM [Concomitant]
     Active Substance: FILGRASTIM
     Dosage: UNK
     Route: 050
     Dates: start: 20240507, end: 20240512
  17. NEOSTIGMINE METHYLSULFATE [Concomitant]
     Active Substance: NEOSTIGMINE METHYLSULFATE
     Dosage: UNK
     Route: 065
     Dates: start: 20240603, end: 20240604
  18. PALONOSETRON [Concomitant]
     Active Substance: PALONOSETRON
     Dosage: UNK
     Route: 065
     Dates: start: 20240502, end: 20240502
  19. LEVOFLOXACIN [Concomitant]
     Active Substance: LEVOFLOXACIN
     Dosage: UNK, START DATE: MAY-2024, ONGOING
     Route: 065
     Dates: start: 202405
  20. RASBURICASE [Concomitant]
     Active Substance: RASBURICASE
     Dosage: UNK, ONGOING
     Route: 065
     Dates: start: 20240430
  21. PIPERACILLIN AND TAZOBACTAM [Concomitant]
     Active Substance: PIPERACILLIN SODIUM\TAZOBACTAM SODIUM
     Dosage: UNK, ONGOING
     Route: 050
     Dates: start: 20240507, end: 20240519
  22. VORICONAZOLE [Concomitant]
     Active Substance: VORICONAZOLE
     Dosage: UNK, ONGOING
     Route: 065
     Dates: start: 20240519
  23. DIHYDROCODEINE;PENTETRAZOL [Concomitant]
     Dosage: UNK
     Route: 065
     Dates: start: 20240516, end: 20240529
  24. TRAMADOL [Concomitant]
     Active Substance: TRAMADOL\TRAMADOL HYDROCHLORIDE
     Dosage: UNK, ONGOING
     Route: 065
     Dates: start: 20240516
  25. DEXAMETHASONE [Concomitant]
     Active Substance: DEXAMETHASONE
     Dosage: UNK, START DATE: MAY-2024, END DATE: MAY-2024
     Route: 065
  26. DEXAMETHASONE [Concomitant]
     Active Substance: DEXAMETHASONE
     Dosage: UNK, START DATE: MAY-2024, END DATE: MAY-2024
     Route: 050
  27. FUROSEMIDE [Concomitant]
     Active Substance: FUROSEMIDE
     Dosage: UNK
     Route: 065
     Dates: start: 20240430, end: 20240503
  28. PANTOPRAZOLE [Concomitant]
     Active Substance: PANTOPRAZOLE
     Dosage: UNK
     Route: 065
     Dates: start: 20240501
  29. ACETYLCYSTEINE [Concomitant]
     Active Substance: ACETYLCYSTEINE
     Dosage: UNK, ONGOING
     Route: 065
     Dates: start: 20240531
  30. TOCILIZUMAB [Concomitant]
     Active Substance: TOCILIZUMAB
     Dosage: UNK, ONGOING
     Route: 065
     Dates: start: 20240601
  31. Calcium chloride dihydrate;Potassium chloride;Sodium acetate trihydrat [Concomitant]
     Dosage: UNK, ONGOING
     Route: 065
     Dates: start: 20240530
  32. CEFTRIAXONE [Concomitant]
     Active Substance: CEFTRIAXONE\CEFTRIAXONE SODIUM
     Dosage: UNK
     Route: 065
     Dates: start: 20240504, end: 20240507
  33. INSULIN HUMAN [Concomitant]
     Active Substance: INSULIN HUMAN
     Dosage: UNK, ONGOING
     Route: 065
     Dates: start: 20240530
  34. METOCLOPRAMIDE [Concomitant]
     Active Substance: METOCLOPRAMIDE
     Dosage: UNK
     Route: 065
     Dates: start: 20240530, end: 20240604
  35. ACETAMINOPHEN [Concomitant]
     Active Substance: ACETAMINOPHEN
     Indication: Premedication
     Dosage: 1 G
     Route: 050
     Dates: start: 20240524, end: 20240531
  36. ACETAMINOPHEN [Concomitant]
     Active Substance: ACETAMINOPHEN
     Dosage: 1G
     Route: 050
     Dates: start: 20240506
  37. ACETAMINOPHEN [Concomitant]
     Active Substance: ACETAMINOPHEN
     Dosage: 1G
     Route: 050
     Dates: start: 20240531
  38. CHLORPHENIRAMINE MALEATE [Concomitant]
     Active Substance: CHLORPHENIRAMINE MALEATE
     Indication: Premedication
     Dosage: 10 MG
     Route: 050
     Dates: start: 20240524, end: 20240531
  39. AMINO ACIDS, SOURCE UNSPECIFIED [Concomitant]
     Active Substance: AMINO ACIDS, SOURCE UNSPECIFIED
     Dosage: UNK
     Route: 065
     Dates: start: 20240501, end: 20240530
  40. CHOLECALCIFEROL [Concomitant]
     Active Substance: CHOLECALCIFEROL
     Dosage: UNK, ONGOING
     Route: 065
     Dates: start: 20240523
  41. ENOXAPARIN [Concomitant]
     Active Substance: ENOXAPARIN
     Dosage: UNK
     Route: 065
     Dates: start: 20240430, end: 20240509
  42. CALCIUM CHLORIDE [Concomitant]
     Active Substance: CALCIUM CHLORIDE
     Dosage: UNK, ONGOING
     Route: 065
     Dates: start: 20240604
  43. DEXAMETHASONE PHOSPHATE [Concomitant]
     Active Substance: DEXAMETHASONE PHOSPHATE
     Dosage: UNK
     Route: 065
     Dates: start: 20240501, end: 20240506
  44. DEXAMETHASONE PHOSPHATE [Concomitant]
     Active Substance: DEXAMETHASONE PHOSPHATE
     Dosage: UNK
     Route: 065
     Dates: start: 20240524, end: 20240604
  45. ACYCLOVIR [Concomitant]
     Active Substance: ACYCLOVIR
     Dosage: UNK, ONGOING
     Route: 065
     Dates: start: 20240430
  46. ACETAMINOPHEN [Concomitant]
     Active Substance: ACETAMINOPHEN
     Dosage: UNK, ONGOING
     Route: 065
     Dates: start: 20240507
  47. BACTRIM [Concomitant]
     Active Substance: SULFAMETHOXAZOLE\TRIMETHOPRIM
     Dosage: UNK
     Route: 065
     Dates: start: 20240530, end: 20240603
  48. AMPHOTERICIN B [Concomitant]
     Active Substance: AMPHOTERICIN B
     Dosage: UNK, ONGOING
     Route: 065
     Dates: start: 20240530
  49. RITUXIMAB [Concomitant]
     Active Substance: RITUXIMAB
     Dosage: UNK
     Route: 065
     Dates: start: 20240506, end: 20240506
  50. CALCIUM GLUCONATE [Concomitant]
     Active Substance: CALCIUM GLUCONATE
     Dosage: UNK, ONGOING
     Route: 065
     Dates: start: 20240604
  51. QUETIAPINE [Concomitant]
     Active Substance: QUETIAPINE
     Dosage: UNK, ONGOING
     Route: 065
     Dates: start: 20240604
  52. MIDAZOLAM [Concomitant]
     Active Substance: MIDAZOLAM
     Dosage: UNK, ONGOING
     Route: 065
     Dates: start: 20240601
  53. ALPRAZOLAM [Concomitant]
     Active Substance: ALPRAZOLAM
     Dosage: UNK, ONGOING
     Dates: start: 20240502
  54. ZOLEDRONIC ACID [Concomitant]
     Active Substance: ZOLEDRONIC ACID
     Dosage: UNK, ONGOING
     Route: 065
     Dates: start: 20240522
  55. SODIUM SUCCINATE [Concomitant]
     Active Substance: SODIUM SUCCINATE HEXAHYDRATE
     Dosage: 500 MG (HYDROCORTISONE))
     Route: 050
     Dates: start: 20240531, end: 20240601
  56. HYDROCORTISONE [Concomitant]
     Active Substance: HYDROCORTISONE\HYDROCORTISONE ACETATE
     Dosage: UNK
     Route: 065
     Dates: start: 20240506, end: 20240506
  57. MEROPENEM [Concomitant]
     Active Substance: MEROPENEM
     Dosage: UNK, ONGOING
     Route: 065
     Dates: start: 20240519
  58. VANCOMYCIN [Concomitant]
     Active Substance: VANCOMYCIN
     Dosage: UNK, ONGOING
     Route: 050
     Dates: start: 20240509, end: 20240518
  59. CASPOFUNGIN [Concomitant]
     Active Substance: CASPOFUNGIN
     Dosage: UNK, ONGOING
     Route: 050
     Dates: start: 20240511
  60. LEVOSULPIRIDE [Concomitant]
     Active Substance: LEVOSULPIRIDE
     Dosage: UNK, ONGOING
     Route: 065
     Dates: start: 20240503
  61. DELORAZEPAM [Concomitant]
     Active Substance: DELORAZEPAM
     Dosage: UNK, ONGOING
     Route: 065
     Dates: start: 20240601
  62. LINEZOLID [Concomitant]
     Active Substance: LINEZOLID
     Dosage: UNK, ONGOING
     Route: 065
     Dates: start: 20240518
  63. CITALOPRAM [Concomitant]
     Active Substance: CITALOPRAM\CITALOPRAM HYDROBROMIDE
     Dosage: UNK, ONGOING
     Route: 065
     Dates: start: 20240601
  64. BECLOMETHASONE DIPROPIONATE [Concomitant]
     Active Substance: BECLOMETHASONE DIPROPIONATE
     Dosage: UNK, ONGOING
     Route: 065
     Dates: start: 20240601

REACTIONS (13)
  - Flatulence [Fatal]
  - Gastric dilatation [Fatal]
  - General physical health deterioration [Unknown]
  - Pyrexia [Fatal]
  - Urine abnormality [Fatal]
  - Haemoperitoneum [Fatal]
  - Immunosuppression [Unknown]
  - Necrotising colitis [Fatal]
  - Respiratory failure [Not Recovered/Not Resolved]
  - Hypotension [Fatal]
  - Blood test abnormal [Fatal]
  - Abdominal distension [Fatal]
  - Chromaturia [Fatal]

NARRATIVE: CASE EVENT DATE: 20240530
